FAERS Safety Report 16121696 (Version 1)
Quarter: 2019Q1

REPORT INFORMATION
  Report Type: Spontaneous
  Country: SE (occurrence: SE)
  Receive Date: 20190327
  Receipt Date: 20190327
  Transmission Date: 20190418
  Serious: Yes (Life-Threatening, Hospitalization, Other)
  Sender: FDA-Public Use
  Company Number: SE-ACCORD-115893

PATIENT
  Age: 90 Year
  Sex: Female

DRUGS (11)
  1. PREDNISOLONE. [Concomitant]
     Active Substance: PREDNISOLONE
  2. CLOPIDOGREL [Suspect]
     Active Substance: CLOPIDOGREL BISULFATE
     Indication: MYOCARDIAL INFARCTION
     Dosage: UNK
     Route: 048
     Dates: start: 20140806, end: 20140811
  3. SAROTEN [Concomitant]
     Active Substance: AMITRIPTYLINE
     Dosage: STRENGTH: 25 MG
  4. ARIXTRA [Suspect]
     Active Substance: FONDAPARINUX SODIUM
     Indication: MYOCARDIAL INFARCTION
     Dosage: 2.5 MG/0.5ML, QD, STRENGTH:  2.5 MG / 0.5 ML
     Dates: start: 20140806, end: 20140808
  5. XERODENT [Concomitant]
     Dosage: STRENGTH:  28.6 MG / 0.25 MG
  6. LANZO [Concomitant]
     Active Substance: LANSOPRAZOLE
     Dosage: STRENGTH: 15 MG
  7. PANODIL [Concomitant]
     Active Substance: ACETAMINOPHEN
     Indication: PAIN
     Dosage: STRENGTH: 500 MG
  8. SELOKEN [Concomitant]
     Active Substance: METOPROLOL
     Dosage: STRENGTH: 50 MG
  9. ACETYLSALICYLIC ACID [Suspect]
     Active Substance: ASPIRIN
     Indication: MYOCARDIAL INFARCTION
     Dosage: 75 MG, QD, STRENGTH: 75 MG, ALSO RECEIVED 75 MG, QID ON 06-AUG-2014
     Route: 048
     Dates: start: 20140807, end: 20140811
  10. LEVAXIN [Concomitant]
     Active Substance: LEVOTHYROXINE SODIUM
     Dosage: STRENGTH: 50 MICROGRAMS
  11. BETOLVEX [Concomitant]
     Active Substance: CYANOCOBALAMIN
     Dosage: STRENGTH: 1 MG

REACTIONS (2)
  - Oesophageal candidiasis [Unknown]
  - Cerebral haemorrhage [Not Recovered/Not Resolved]

NARRATIVE: CASE EVENT DATE: 20140811
